FAERS Safety Report 4579962-8 (Version None)
Quarter: 2005Q1

REPORT INFORMATION
  Report Type: 
  Country: None (occurrence: None)
  Receive Date: 20050214
  Receipt Date: 20040920
  Transmission Date: 20050727
  Serious: Yes (Death)
  Sender: FDA-Public Use
  Company Number: NO-BRISTOL-MYERS SQUIBB COMPANY-12708335

PATIENT
  Age: 67 Year
  Sex: Male

DRUGS (3)
  1. CISPLATIN [Suspect]
     Indication: SMALL CELL LUNG CANCER STAGE UNSPECIFIED
     Route: 041
     Dates: start: 20040810, end: 20040810
  2. VEPESID [Suspect]
     Indication: SMALL CELL LUNG CANCER STAGE UNSPECIFIED
     Dosage: 190 MG ON DAY 1 350 MG ON DAYS 2-4
     Route: 041
     Dates: start: 20040810, end: 20040813
  3. DECADRON [Suspect]
     Indication: SMALL CELL LUNG CANCER STAGE UNSPECIFIED
     Route: 048
     Dates: start: 20040813, end: 20040827

REACTIONS (3)
  - NEUTROPENIA [None]
  - RENAL FAILURE ACUTE [None]
  - SEPSIS [None]
